FAERS Safety Report 6527805-5 (Version None)
Quarter: 2010Q1

REPORT INFORMATION
  Report Type: 
  Country: None (occurrence: None)
  Receive Date: 20100106
  Receipt Date: 20091228
  Transmission Date: 20100710
  Serious: Yes (Life-Threatening, Hospitalization)
  Sender: FDA-Public Use
  Company Number: DE-JNJFOC-20100100516

PATIENT
  Age: 68 Year
  Sex: Male

DRUGS (4)
  1. REOPRO [Suspect]
     Indication: ACUTE MYOCARDIAL INFARCTION
     Route: 016
     Dates: start: 20091224
  2. REOPRO [Suspect]
     Route: 042
     Dates: start: 20091224
  3. ACETYLSALICYLIC ACID [Concomitant]
  4. CLOPIDOGREL [Concomitant]

REACTIONS (3)
  - CARDIAC TAMPONADE [None]
  - INCORRECT ROUTE OF DRUG ADMINISTRATION [None]
  - URINARY BLADDER HAEMORRHAGE [None]
